FAERS Safety Report 21301221 (Version 1)
Quarter: 2022Q3

REPORT INFORMATION
  Report Type: Spontaneous
  Country: US (occurrence: None)
  Receive Date: 20220906
  Receipt Date: 20220906
  Transmission Date: 20221026
  Serious: Yes (Hospitalization)
  Sender: FDA-Public Use
  Company Number: None

PATIENT
  Sex: Female

DRUGS (5)
  1. SIROLIMUS [Suspect]
     Active Substance: SIROLIMUS
     Indication: Immunodeficiency
     Dosage: 1 MG ORA??TAKE 1 TABLET BY MOUTH EVERY MORNING. TAKE WITH ONE 0.5 MG TABLET FOR A TOTAL DOSE OF 1.5
     Route: 048
     Dates: start: 20220314
  2. SIROLIMUS [Suspect]
     Active Substance: SIROLIMUS
     Dosage: FREQUENCY : AS DIRECTED;?
     Route: 048
  3. SIROLIMUS [Suspect]
     Active Substance: SIROLIMUS
     Indication: Immunodeficiency
     Dosage: TAKE 1 TABLET BY MOUTH EVERY MORNING. TAKE WITH ONE 0.5 MG TABLET FOR A TOTAL DOSE OF 1.5 MG ONCE DA
     Dates: start: 20220316
  4. SIROLIMUS [Suspect]
     Active Substance: SIROLIMUS
     Dosage: FREQUENCY : AS DIRECTED;?
  5. ELIQUIS [Concomitant]
     Active Substance: APIXABAN

REACTIONS (1)
  - Hospitalisation [None]
